FAERS Safety Report 5849539-2 (Version None)
Quarter: 2008Q3

REPORT INFORMATION
  Report Type: 
  Country: None (occurrence: None)
  Receive Date: 20080819
  Receipt Date: 20080808
  Transmission Date: 20090109
  Serious: Yes (Other)
  Sender: FDA-Public Use
  Company Number: B0533518A

PATIENT
  Age: 79 Year
  Sex: Female

DRUGS (5)
  1. LAMICTAL [Suspect]
     Indication: EPILEPSY
     Dosage: 125MG PER DAY
     Route: 065
  2. THYROXINE [Concomitant]
     Route: 065
  3. UNKNOWN DRUG [Concomitant]
     Route: 065
  4. UNKNOWN DRUG [Concomitant]
     Route: 065
  5. DILTIAZEM HCL [Concomitant]
     Route: 065

REACTIONS (3)
  - AGEUSIA [None]
  - ANOSMIA [None]
  - URTICARIA [None]
